FAERS Safety Report 6847737-2 (Version None)
Quarter: 2010Q3

REPORT INFORMATION
  Report Type: 
  Country: None (occurrence: None)
  Receive Date: 20100716
  Receipt Date: 20100713
  Transmission Date: 20110219
  Serious: Yes (Death, Other)
  Sender: FDA-Public Use
  Company Number: PHHY2010BR11090

PATIENT
  Sex: Male

DRUGS (5)
  1. DIOVAN HCT [Suspect]
     Indication: HYPERTENSION
     Dosage: 160/12.5 MG ONCE DAILY
     Route: 048
     Dates: start: 20090101
  2. DIGOXIN [Concomitant]
     Indication: CARDIAC DISORDER
     Dosage: 0,25 MG, HALF TABLET/DAY.
     Route: 048
  3. FUROSEMIDE [Concomitant]
     Indication: DIURETIC THERAPY
     Dosage: 40 MG TWICE DAILY
     Route: 048
  4. INSULIN [Concomitant]
     Indication: DIABETES MELLITUS
     Dosage: 3 TIMES PER DAY (DAILY DOSE OF 80MG).
     Route: 058
  5. MIRTAZAPINE [Concomitant]
     Indication: DEPRESSION
     Dosage: 45MG ONCE DAILY
     Route: 048

REACTIONS (6)
  - ATRIOVENTRICULAR BLOCK [None]
  - CARDIAC DISORDER [None]
  - CATARACT [None]
  - DEATH [None]
  - DEPRESSION [None]
  - VISUAL ACUITY REDUCED [None]
